FAERS Safety Report 7496219-6 (Version None)
Quarter: 2011Q2

REPORT INFORMATION
  Report Type: 
  Country: None (occurrence: None)
  Receive Date: 20110523
  Receipt Date: 20110509
  Transmission Date: 20111010
  Serious: Yes (Other)
  Sender: FDA-Public Use
  Company Number: NL-TEVA-282021ISR

PATIENT
  Age: 23 Year
  Sex: Male

DRUGS (2)
  1. ACYCLOVIR [Suspect]
     Route: 042
  2. VALACICLOVIR [Suspect]

REACTIONS (1)
  - MYELITIS TRANSVERSE [None]
